FAERS Safety Report 7403987-8 (Version None)
Quarter: 2011Q2

REPORT INFORMATION
  Report Type: 
  Country: None (occurrence: None)
  Receive Date: 20110408
  Receipt Date: 20101020
  Transmission Date: 20111010
  Serious: Yes (Hospitalization, Other)
  Sender: FDA-Public Use
  Company Number: US-BAYER-201022424NA

PATIENT
  Age: 21 Year
  Sex: Female
  Weight: 92 kg

DRUGS (11)
  1. HYDROCODONE [Concomitant]
  2. YASMIN [Suspect]
     Indication: PRODUCT USED FOR UNKNOWN INDICATION
     Route: 048
     Dates: start: 20041001, end: 20080701
  3. SERTRALINE HYDROCHLORIDE [Concomitant]
     Dosage: 100 MG, UNK
     Route: 048
     Dates: start: 20040101, end: 20080701
  4. PAXIL [Concomitant]
     Indication: DEPRESSION
     Dosage: UNK
     Dates: start: 20010101
  5. MUCINEX [Concomitant]
     Route: 048
  6. DICLOFENAC [Concomitant]
     Dosage: UNK
     Dates: start: 20091209
  7. NIACIN [Concomitant]
     Indication: BLOOD CHOLESTEROL INCREASED
     Dosage: 500 MG, UNK
     Route: 048
     Dates: start: 20060101
  8. EFFEXOR [Concomitant]
     Indication: ANXIETY
     Dosage: 75 MG, UNK
     Route: 048
     Dates: start: 20080801
  9. LOVENOX [Concomitant]
  10. SUDAFED 12 HOUR [Concomitant]
     Route: 048
  11. TYLENOL [DIPHENHYDRAMINE HYDROCHLORIDE,PARACETAMOL] [Concomitant]
     Indication: PAIN IN EXTREMITY
     Dosage: UNK
     Dates: start: 20080614

REACTIONS (13)
  - PERIPHERAL NERVE INJURY [None]
  - NEURALGIA [None]
  - DEEP VEIN THROMBOSIS [None]
  - PHYSICAL DISABILITY [None]
  - OEDEMA PERIPHERAL [None]
  - THROMBOSIS [None]
  - STRESS [None]
  - ANXIETY [None]
  - INSOMNIA [None]
  - PAIN IN EXTREMITY [None]
  - PAIN [None]
  - BACK PAIN [None]
  - MEDICAL DIET [None]
